FAERS Safety Report 8801662 (Version 2)
Quarter: 2015Q1

REPORT INFORMATION
  Report Type: Report from Study
  Country: US (occurrence: US)
  Receive Date: 20120921
  Receipt Date: 20150320
  Transmission Date: 20150721
  Serious: Yes (Death)
  Sender: FDA-Public Use
  Company Number: US-ROCHE-1124937

PATIENT
  Sex: Female
  Weight: 73 kg

DRUGS (49)
  1. AREDIA [Concomitant]
     Active Substance: PAMIDRONATE DISODIUM
     Route: 065
     Dates: start: 200512, end: 200601
  2. NEXIUM [Concomitant]
     Active Substance: ESOMEPRAZOLE MAGNESIUM
     Route: 065
  3. AMBIEN [Concomitant]
     Active Substance: ZOLPIDEM TARTRATE
     Route: 065
  4. ZOLOFT [Concomitant]
     Active Substance: SERTRALINE HYDROCHLORIDE
     Route: 048
     Dates: start: 20010719
  5. KYTRIL [Concomitant]
     Active Substance: GRANISETRON HYDROCHLORIDE
     Route: 065
  6. AMOXICILLIN. [Concomitant]
     Active Substance: AMOXICILLIN
     Route: 065
  7. NYSTATIN. [Concomitant]
     Active Substance: NYSTATIN
     Route: 065
  8. PAMELOR [Concomitant]
     Active Substance: NORTRIPTYLINE HYDROCHLORIDE
     Route: 065
  9. ZIAC (UNITED STATES) [Concomitant]
     Route: 048
     Dates: start: 20010719
  10. COUMADIN [Concomitant]
     Active Substance: WARFARIN SODIUM
     Route: 065
  11. SENOKOT [Concomitant]
     Active Substance: SENNOSIDES
     Route: 065
     Dates: start: 20051231
  12. HYDROMORPHONE [Concomitant]
     Active Substance: HYDROMORPHONE
     Route: 042
     Dates: start: 20051223
  13. ARANESP [Concomitant]
     Active Substance: DARBEPOETIN ALFA
     Route: 042
  14. NEULASTA [Concomitant]
     Active Substance: PEGFILGRASTIM
     Route: 065
  15. BENADRYL [Concomitant]
     Active Substance: DIPHENHYDRAMINE HYDROCHLORIDE
     Route: 065
  16. SOLU-CORTEF [Concomitant]
     Active Substance: HYDROCORTISONE SODIUM SUCCINATE
     Route: 065
  17. VITAMIN B12 [Concomitant]
     Active Substance: CYANOCOBALAMIN
     Route: 030
  18. VALTREX [Concomitant]
     Active Substance: VALACYCLOVIR HYDROCHLORIDE
     Route: 065
  19. ATIVAN [Concomitant]
     Active Substance: LORAZEPAM
     Route: 065
  20. AVASTIN [Suspect]
     Active Substance: BEVACIZUMAB
     Indication: BREAST CANCER FEMALE
     Route: 042
     Dates: start: 20051223, end: 200601
  21. ZOFRAN [Concomitant]
     Active Substance: ONDANSETRON HYDROCHLORIDE
     Route: 042
  22. EFFEXOR [Concomitant]
     Active Substance: VENLAFAXINE HYDROCHLORIDE
     Route: 065
  23. MACRODANTIN [Concomitant]
     Active Substance: NITROFURANTOIN
     Route: 065
  24. NASACORT [Concomitant]
     Active Substance: TRIAMCINOLONE ACETONIDE
     Route: 065
  25. DEPO-MEDROL [Concomitant]
     Active Substance: METHYLPREDNISOLONE ACETATE
     Route: 030
  26. ANZEMET [Concomitant]
     Active Substance: DOLASETRON MESYLATE
     Route: 065
  27. TYLENOL [Concomitant]
     Active Substance: ACETAMINOPHEN
     Route: 065
  28. TAGAMET [Concomitant]
     Active Substance: CIMETIDINE
     Route: 065
  29. DECADRON [Concomitant]
     Active Substance: DEXAMETHASONE
     Route: 065
  30. ZITHROMAX [Concomitant]
     Active Substance: AZITHROMYCIN DIHYDRATE
     Route: 065
  31. TAMOXIFEN [Concomitant]
     Active Substance: TAMOXIFEN
     Route: 065
  32. COMPAZINE [Concomitant]
     Active Substance: PROCHLORPERAZINE MALEATE
     Route: 065
  33. GEMZAR [Concomitant]
     Active Substance: GEMCITABINE HYDROCHLORIDE
     Route: 042
     Dates: start: 20051223, end: 200601
  34. TAXOTERE [Concomitant]
     Active Substance: DOCETAXEL
     Route: 065
     Dates: start: 200512, end: 200601
  35. ALOXI [Concomitant]
     Active Substance: PALONOSETRON HYDROCHLORIDE
     Route: 065
  36. MAGNESIUM SULFATE. [Concomitant]
     Active Substance: MAGNESIUM SULFATE
     Route: 042
  37. OXYCONTIN [Concomitant]
     Active Substance: OXYCODONE HYDROCHLORIDE
     Route: 065
  38. DILAUDID [Concomitant]
     Active Substance: HYDROMORPHONE HYDROCHLORIDE
     Route: 065
  39. TORADOL [Concomitant]
     Active Substance: KETOROLAC TROMETHAMINE
     Route: 030
  40. VITAMIN E [Concomitant]
     Active Substance: .ALPHA.-TOCOPHEROL
     Route: 065
  41. CELEBREX [Concomitant]
     Active Substance: CELECOXIB
     Route: 065
  42. XANAX [Concomitant]
     Active Substance: ALPRAZOLAM
     Route: 065
  43. GAMMAGARD [Concomitant]
     Active Substance: HUMAN IMMUNOGLOBULIN G
     Route: 042
  44. ALLEGRA [Concomitant]
     Active Substance: FEXOFENADINE HYDROCHLORIDE
     Route: 065
  45. DEXAMETHASONE SODIUM METASULFOBENZOATE [Concomitant]
     Route: 042
  46. KLOR-CON [Concomitant]
     Active Substance: POTASSIUM CHLORIDE
     Route: 042
  47. DIFLUCAN [Concomitant]
     Active Substance: FLUCONAZOLE
     Route: 065
  48. DARVOCET-N 100 [Concomitant]
     Active Substance: ACETAMINOPHEN\PROPOXYPHENE NAPSYLATE
     Route: 065
  49. OXYCONTIN [Concomitant]
     Active Substance: OXYCODONE HYDROCHLORIDE
     Route: 065

REACTIONS (13)
  - Mastoid effusion [Unknown]
  - Discomfort [Unknown]
  - Nausea [Unknown]
  - Death [Fatal]
  - Hypomagnesaemia [Unknown]
  - Hypophagia [Unknown]
  - Paraesthesia [Unknown]
  - Back pain [Unknown]
  - Constipation [Unknown]
  - Injection site reaction [Unknown]
  - Vomiting [Unknown]
  - Stomatitis [Unknown]
  - Hypokalaemia [Unknown]
